FAERS Safety Report 5169731-2 (Version None)
Quarter: 2006Q4

REPORT INFORMATION
  Report Type: 
  Country: None (occurrence: None)
  Receive Date: 20061212
  Receipt Date: 20061115
  Transmission Date: 20070319
  Serious: Yes (Hospitalization)
  Sender: FDA-Public Use
  Company Number: PHHO2006GB19399

PATIENT
  Age: 85 Year
  Sex: Female
  Weight: 72 kg

DRUGS (2)
  1. RAD001 VS PLACEBO [Suspect]
     Indication: BREAST CANCER
     Dosage: DOUBLE BLIND
     Route: 048
     Dates: start: 20060919, end: 20061106
  2. FEMARA [Suspect]
     Indication: BREAST CANCER
     Route: 048
     Dates: start: 20060919, end: 20061106

REACTIONS (7)
  - CHILLS [None]
  - HYPOXIA [None]
  - INFLAMMATION [None]
  - PNEUMONITIS [None]
  - PYREXIA [None]
  - RASH PRURITIC [None]
  - X-RAY ABNORMAL [None]
